FAERS Safety Report 23795097 (Version 1)
Quarter: 2024Q2

REPORT INFORMATION
  Report Type: Spontaneous
  Country: US (occurrence: US)
  Receive Date: 20240429
  Receipt Date: 20240429
  Transmission Date: 20240715
  Serious: No
  Sender: FDA-Public Use
  Company Number: US-SPECGX-T202300836

PATIENT
  Age: 51 Year
  Sex: Female
  Weight: 57 kg

DRUGS (1)
  1. METHADONE [Suspect]
     Active Substance: METHADONE HYDROCHLORIDE
     Indication: Spinal fusion surgery
     Dosage: 5 MILLIGRAM, BID
     Route: 065
     Dates: start: 20221006

REACTIONS (1)
  - Drug screen negative [Unknown]

NARRATIVE: CASE EVENT DATE: 20230224
